FAERS Safety Report 16903623 (Version 2)
Quarter: 2019Q4

REPORT INFORMATION
  Report Type: Spontaneous
  Country: US (occurrence: US)
  Receive Date: 20191010
  Receipt Date: 20191030
  Transmission Date: 20200122
  Serious: Yes (Hospitalization, Other)
  Sender: FDA-Public Use
  Company Number: US-B.I. PHARMACEUTICALS,INC./RIDGEFIELD-2019-US-106907

PATIENT
  Age: 64 Year
  Sex: Male

DRUGS (3)
  1. LISINOPRIL AND HYDROCHLOROTHIAZIDE [Concomitant]
     Active Substance: HYDROCHLOROTHIAZIDE\LISINOPRIL
     Indication: HYPERTENSION
     Route: 065
     Dates: start: 2018
  2. METFORMIN [Concomitant]
     Active Substance: METFORMIN HYDROCHLORIDE
     Indication: TYPE 2 DIABETES MELLITUS
     Route: 065
  3. JARDIANCE [Suspect]
     Active Substance: EMPAGLIFLOZIN
     Indication: TYPE 2 DIABETES MELLITUS
     Dosage: 25 MG DAILY
     Route: 065
     Dates: start: 201901, end: 20190317

REACTIONS (10)
  - Blood creatinine increased [Recovered/Resolved]
  - Renal failure [Not Recovered/Not Resolved]
  - Urinary retention [Recovered/Resolved]
  - Renal failure [Recovered/Resolved]
  - Acute kidney injury [Recovered/Resolved]
  - Renal impairment [Recovered/Resolved]
  - Oedema [Recovered/Resolved]
  - Urinary retention [Recovered/Resolved]
  - Blood creatinine increased [Recovered/Resolved]
  - Urinary tract infection [Recovered/Resolved]

NARRATIVE: CASE EVENT DATE: 201903
